FAERS Safety Report 7219749-0 (Version None)
Quarter: 2010Q4

REPORT INFORMATION
  Report Type: 
  Country: None (occurrence: None)
  Receive Date: 20101126
  Receipt Date: 20100805
  Transmission Date: 20110411
  Serious: No
  Sender: FDA-Public Use
  Company Number: 313649

PATIENT
  Age: 48 Year
  Sex: Female

DRUGS (1)
  1. VICTOZA [Suspect]
     Indication: METABOLIC SYNDROME
     Dosage: SUBCUTANEOUS
     Route: 058

REACTIONS (5)
  - ANXIETY [None]
  - ASTHENIA [None]
  - ERYTHEMA [None]
  - PALPITATIONS [None]
  - PRESYNCOPE [None]
